FAERS Safety Report 6401527-3 (Version None)
Quarter: 2009Q4

REPORT INFORMATION
  Report Type: 
  Country: None (occurrence: None)
  Receive Date: 20091015
  Receipt Date: 20091007
  Transmission Date: 20100525
  Serious: Yes (Life-Threatening, Hospitalization)
  Sender: FDA-Public Use
  Company Number: DE-NOVOPROD-285582

PATIENT
  Age: 85 Year
  Sex: Female
  Weight: 70 kg

DRUGS (18)
  1. NOVOMIX 30 [Suspect]
     Indication: TYPE 2 DIABETES MELLITUS
     Dosage: 54 U, QD
     Route: 058
     Dates: start: 20000101, end: 20081214
  2. NOVONORM [Suspect]
     Indication: TYPE 2 DIABETES MELLITUS
     Dosage: 2 MG, QD
     Route: 048
     Dates: start: 20000101, end: 20081214
  3. LANTUS [Suspect]
     Indication: TYPE 2 DIABETES MELLITUS
     Dosage: 16 U, QD
     Route: 058
     Dates: start: 20000101, end: 20081221
  4. LANTUS [Suspect]
     Dosage: 12 U, QD
     Route: 058
     Dates: start: 20081222, end: 20081226
  5. LANTUS [Suspect]
     Dosage: 10 U, QD
     Route: 058
     Dates: start: 20081227
  6. LANTUS [Suspect]
     Dosage: 8 U, QD
     Route: 058
     Dates: start: 20081230, end: 20090104
  7. LANTUS [Suspect]
     Dosage: 6 U, QD
     Dates: start: 20090105
  8. ALLOPURINOL [Concomitant]
     Dosage: 100 MG, QD
     Route: 048
     Dates: start: 20081107, end: 20090105
  9. DIGITOXIN INJ [Concomitant]
     Dosage: .07 MG, QD
     Route: 048
     Dates: start: 19900101
  10. DIGITOXIN INJ [Concomitant]
     Dosage: USED MONDAY UNTIL FRIDAY; SATURDAY AND SUNDAY PAUSE
     Route: 048
     Dates: start: 20090108
  11. ENALAPRIL MALEATE [Interacting]
     Dosage: 2.5 MG, QD
     Route: 048
     Dates: end: 20081106
  12. ENALAPRIL MALEATE [Interacting]
     Dosage: 2.5 MG, BID
     Route: 048
     Dates: start: 20081107, end: 20081214
  13. CARVEDILOL [Interacting]
     Dosage: 6.25 MG, QD
     Route: 048
     Dates: end: 20081106
  14. CARVEDILOL [Interacting]
     Dosage: 6.25 MG, BID
     Route: 048
     Dates: start: 20081107, end: 20081214
  15. L-THYROXINE                        /00068001/ [Concomitant]
     Dosage: 125 UG, QD
     Route: 048
     Dates: start: 19900101
  16. OMEPRAZOL                          /00661201/ [Concomitant]
     Dosage: 20 MG, QD
     Route: 048
     Dates: start: 20060101
  17. SPIRONOLACTONE [Concomitant]
     Dosage: 25 MG, QD
     Route: 048
     Dates: start: 20081101, end: 20081214
  18. TORSEMIDE [Concomitant]
     Dosage: 40 MG, QD
     Route: 048
     Dates: start: 20020101

REACTIONS (3)
  - BLOOD CREATININE INCREASED [None]
  - HYPOGLYCAEMIA [None]
  - PNEUMONIA [None]
